FAERS Safety Report 23708063 (Version 5)
Quarter: 2024Q3

REPORT INFORMATION
  Report Type: Spontaneous
  Country: US (occurrence: US)
  Receive Date: 20240404
  Receipt Date: 20240715
  Transmission Date: 20241017
  Serious: Yes (Other)
  Sender: BIOVITRUM
  Company Number: US-BIOVITRUM-2024-US-005229

PATIENT
  Age: 81 Year
  Sex: Male

DRUGS (2)
  1. VONJO [Suspect]
     Active Substance: PACRITINIB
     Indication: Myelofibrosis
     Dosage: TWICE DAILY
     Route: 048
     Dates: start: 20240315
  2. JAKAFI [Concomitant]
     Active Substance: RUXOLITINIB
     Indication: Product used for unknown indication

REACTIONS (9)
  - Pneumonia [Unknown]
  - Haematochezia [Unknown]
  - Blood test abnormal [Unknown]
  - Blood iron decreased [Unknown]
  - Platelet count increased [Recovering/Resolving]
  - Rotator cuff syndrome [Unknown]
  - Gastrointestinal disorder [Unknown]
  - Sluggishness [Unknown]
  - Product dose omission issue [Unknown]
